FAERS Safety Report 8189938-X (Version None)
Quarter: 2012Q1

REPORT INFORMATION
  Report Type: 
  Country: None (occurrence: None)
  Receive Date: 20120221
  Receipt Date: 20120109
  Transmission Date: 20120608
  Serious: No
  Sender: FDA-Public Use
  Company Number: 1000026849

PATIENT
  Age: 33 Year
  Sex: Female

DRUGS (2)
  1. MULTIVITAMINS (MULTIVITAMINS) (MULTIVITAMINS) [Concomitant]
  2. VIIBRYD [Suspect]
     Indication: IRRITABILITY
     Dosage: 10 MG (10 MG, 1 IN 1 D), ORAL
     Route: 048
     Dates: start: 20111101

REACTIONS (2)
  - ALOPECIA [None]
  - OFF LABEL USE [None]
